FAERS Safety Report 9410041 (Version 3)
Quarter: 2013Q3

REPORT INFORMATION
  Report Type: Spontaneous
  Country: IT (occurrence: IT)
  Receive Date: 20130719
  Receipt Date: 20130830
  Transmission Date: 20140515
  Serious: Yes (Life-Threatening, Other)
  Sender: FDA-Public Use
  Company Number: IT-MERCK-1307ITA006279

PATIENT
  Age: 54 Year
  Sex: Male
  Weight: 58 kg

DRUGS (3)
  1. ISENTRESS [Suspect]
     Indication: RETROVIRAL INFECTION
     Dosage: 800 MG, QD
     Route: 048
     Dates: start: 20130313
  2. ISENTRESS [Interacting]
     Indication: HIV INFECTION
     Dosage: 800MG, QD
     Dates: start: 201211, end: 201303
  3. KALETRA [Interacting]
     Indication: RETROVIRAL INFECTION
     Dosage: 1 GR DAILY
     Route: 048
     Dates: start: 20130313

REACTIONS (1)
  - Adams-Stokes syndrome [Recovered/Resolved]
